FAERS Safety Report 4295527-X (Version None)
Quarter: 2004Q1

REPORT INFORMATION
  Report Type: 
  Country: None (occurrence: None)
  Receive Date: 20040212
  Receipt Date: 20040203
  Transmission Date: 20041129
  Serious: Yes (Hospitalization, Other)
  Sender: FDA-Public Use
  Company Number: B0322281A

PATIENT
  Age: 60 Year
  Sex: 0

DRUGS (5)
  1. ALKERAN [Suspect]
     Indication: MULTIPLE MYELOMA
     Dosage: 220 MG/M2
  2. AMIFOSTINE [Concomitant]
  3. GRANULOCYTE COL.STIM. FACT [Concomitant]
  4. CYCLOPHOSPHAMIDE [Concomitant]
  5. ETOPOSIDE [Concomitant]

REACTIONS (4)
  - ATRIAL FIBRILLATION [None]
  - DRUG TOXICITY [None]
  - ENTERITIS [None]
  - MUCOSAL INFLAMMATION [None]
